FAERS Safety Report 5195491-5 (Version None)
Quarter: 2006Q4

REPORT INFORMATION
  Report Type: 
  Country: None (occurrence: None)
  Receive Date: 20061222
  Receipt Date: 20061222
  Transmission Date: 20070319
  Serious: Yes (Life-Threatening)
  Sender: FDA-Public Use
  Company Number: None

PATIENT
  Age: 58 Year
  Sex: Male
  Weight: 79.7 kg

DRUGS (2)
  1. RIBAVIRIN [Suspect]
     Indication: HEPATITIS C
     Dosage: 400 MG   TWICE DAILY   PO
     Route: 048
  2. PEGINTERON ALPHA 2B [Suspect]
     Dosage: 120 NICROGRAMS  WEEKLY  SQ
     Route: 058

REACTIONS (1)
  - ANAEMIA [None]
